FAERS Safety Report 8923729 (Version 1)
Quarter: 2012Q4

REPORT INFORMATION
  Report Type: Report from Study
  Country: CH (occurrence: CH)
  Receive Date: 20121126
  Receipt Date: 20121126
  Transmission Date: 20130627
  Serious: Yes (Hospitalization)
  Sender: FDA-Public Use
  Company Number: CH-ROCHE-1158575

PATIENT
  Age: 68 Year
  Sex: Male
  Weight: 78 kg

DRUGS (19)
  1. BEVACIZUMAB [Suspect]
     Indication: NON-SMALL CELL LUNG CANCER
     Dosage: last dose prior to sae:20/jun/2012
     Route: 042
     Dates: start: 20110823
  2. BEVACIZUMAB [Suspect]
     Dosage: last dsoe prior to sae:20/jun/2012
     Route: 042
  3. PEMETREXED [Suspect]
     Indication: NON-SMALL CELL LUNG CANCER
     Dosage: last dsoe prior to sae:20/jun/2012
     Route: 042
     Dates: start: 20110823
  4. PEMETREXED [Suspect]
     Dosage: last dsoe prior to sae:20/jun/2012
     Route: 042
  5. CISPLATIN [Suspect]
     Indication: NON-SMALL CELL LUNG CANCER
     Dosage: last dsoe prior to sae:26/oct/2011
     Route: 042
     Dates: start: 20110823
  6. CARBOPLATIN [Suspect]
     Indication: NON-SMALL CELL LUNG CANCER
     Dosage: last dose prior to sae:26/10/2011
     Route: 042
     Dates: start: 20110814
  7. RAMIPRIL W/ HYDROCHLOROTHIAZIDE [Concomitant]
  8. TOREM (TORASEMIDE SODIUM) [Concomitant]
     Route: 065
  9. SERTRALINE [Concomitant]
     Route: 065
  10. PANTOZOL [Concomitant]
     Route: 065
  11. MOVICOL [Concomitant]
  12. INSULIN MIXTARD [Concomitant]
  13. SERESTA [Concomitant]
     Route: 065
  14. VITARUBIN [Concomitant]
  15. AMLODIPIN [Concomitant]
     Route: 065
     Dates: start: 20110805
  16. CONCOR [Concomitant]
     Route: 065
  17. GLUCOPHAGE [Concomitant]
     Route: 065
     Dates: start: 20110805
  18. ACTOS [Concomitant]
  19. GLIMEPIRIDE [Concomitant]

REACTIONS (6)
  - Fall [Unknown]
  - Fatigue [Recovered/Resolved]
  - Vomiting [Recovered/Resolved]
  - Dehydration [Recovered/Resolved]
  - Renal failure acute [Recovered/Resolved]
  - Dizziness [Unknown]
